FAERS Safety Report 25653275 (Version 1)
Quarter: 2025Q3

REPORT INFORMATION
  Report Type: Report from Study
  Country: MX (occurrence: MX)
  Receive Date: 20250807
  Receipt Date: 20250807
  Transmission Date: 20251021
  Serious: Yes (Other)
  Sender: ALEXION PHARMACEUTICALS
  Company Number: MX-AstraZeneca-CH-00918918A

PATIENT
  Age: 4 Month
  Sex: Female
  Weight: 3.915 kg

DRUGS (5)
  1. BUDESONIDE\FORMOTEROL FUMARATE DIHYDRATE [Suspect]
     Active Substance: BUDESONIDE\FORMOTEROL FUMARATE DIHYDRATE
     Indication: Bronchopulmonary dysplasia
     Dosage: 1 DOSAGE FORM, Q12H
     Dates: start: 202505, end: 202505
  2. BUDESONIDE\FORMOTEROL FUMARATE DIHYDRATE [Suspect]
     Active Substance: BUDESONIDE\FORMOTEROL FUMARATE DIHYDRATE
     Dosage: 2 DOSAGE FORM, Q12H
     Dates: start: 20250601
  3. PALIVIZUMAB [Suspect]
     Active Substance: PALIVIZUMAB
     Indication: Antiviral prophylaxis
     Dosage: 1ST DOSE
     Dates: start: 20250529
  4. PALIVIZUMAB [Suspect]
     Active Substance: PALIVIZUMAB
     Dosage: 2ND DOSE
     Dates: start: 20250626
  5. PALIVIZUMAB [Suspect]
     Active Substance: PALIVIZUMAB
     Dosage: 3RD DOSE
     Dates: start: 20250724, end: 20250724

REACTIONS (11)
  - Retinopathy [Recovered/Resolved]
  - Vomiting [Recovered/Resolved]
  - Pain [Recovered/Resolved]
  - Crying [Recovered/Resolved]
  - Discomfort [Recovered/Resolved]
  - Malaise [Recovered/Resolved]
  - Influenza [Recovered/Resolved]
  - Visual impairment [Recovering/Resolving]
  - Sneezing [Recovered/Resolved]
  - Rhinorrhoea [Recovered/Resolved]
  - Off label use [Unknown]

NARRATIVE: CASE EVENT DATE: 20250501
